FAERS Safety Report 7336136-5 (Version None)
Quarter: 2011Q1

REPORT INFORMATION
  Report Type: 
  Country: None (occurrence: None)
  Receive Date: 20110307
  Receipt Date: 20110224
  Transmission Date: 20110831
  Serious: Yes (Hospitalization, Other)
  Sender: FDA-Public Use
  Company Number: US-JNJFOC-20110208382

PATIENT
  Age: 92 Year
  Sex: Male
  Weight: 76.66 kg

DRUGS (5)
  1. METOPROLOL [Concomitant]
     Indication: HYPERTENSION
     Route: 048
  2. IMODIUM MULTI-SYMPTOM RELIEF [Suspect]
     Indication: DIARRHOEA
     Dosage: 2 CAPLETS ONCE AND AN ADDITIONAL 1 CAPLET
     Route: 048
  3. GLEEVEC [Concomitant]
     Indication: LEUKAEMIA
     Route: 048
  4. IMODIUM MULTI-SYMPTOM RELIEF [Suspect]
     Route: 048
  5. ASPIRIN [Suspect]
     Indication: ILL-DEFINED DISORDER
     Route: 048

REACTIONS (2)
  - DRUG PRESCRIBING ERROR [None]
  - DIARRHOEA HAEMORRHAGIC [None]
